FAERS Safety Report 8086661-7 (Version None)
Quarter: 2012Q1

REPORT INFORMATION
  Report Type: 
  Country: None (occurrence: None)
  Receive Date: 20120128
  Receipt Date: 20110518
  Transmission Date: 20120608
  Serious: No
  Sender: FDA-Public Use
  Company Number: US-ABBOTT-11P-163-0726722-00

PATIENT
  Sex: Female
  Weight: 90.8 kg

DRUGS (18)
  1. LEVOXYL [Concomitant]
     Indication: AUTOIMMUNE THYROIDITIS
  2. ZOLOFT [Concomitant]
     Indication: DEPRESSION
  3. ALPRAZOLAM [Concomitant]
     Indication: DEPRESSION
  4. METHOTREXATE [Concomitant]
     Indication: PSORIATIC ARTHROPATHY
     Route: 050
  5. MOBIC [Concomitant]
     Indication: MIGRAINE
     Dosage: DOSE DECREASED TO WEEKLY
     Dates: start: 20110518
  6. LEVOXYL [Concomitant]
     Indication: HYPOTHYROIDISM
  7. ZOLOFT [Concomitant]
     Indication: NERVOUSNESS
  8. ZOLOFT [Concomitant]
     Indication: CRYING
  9. FOLIC ACID [Concomitant]
     Indication: SUPPLEMENTATION THERAPY
  10. ZOLOFT [Concomitant]
     Indication: TREMOR
  11. MOBIC [Concomitant]
     Dates: end: 20110518
  12. HUMIRA [Suspect]
     Indication: PSORIATIC ARTHROPATHY
     Dosage: LOT NUMBER AND EXPIRATION DATE WERE UNAVAILABLE.
     Route: 058
     Dates: start: 20100501, end: 20110101
  13. HUMIRA [Suspect]
     Indication: PSORIASIS
  14. ENBREL [Suspect]
     Indication: PSORIASIS
     Dates: start: 20110201
  15. ENBREL [Suspect]
     Indication: PSORIATIC ARTHROPATHY
  16. METHOTREXATE [Concomitant]
     Indication: PSORIASIS
  17. LANSOPRAZOLE [Concomitant]
     Indication: ABDOMINAL PAIN UPPER
     Dates: start: 20110501
  18. ALPRAZOLAM [Concomitant]
     Indication: NERVOUSNESS

REACTIONS (7)
  - RED BLOOD CELL SEDIMENTATION RATE ABNORMAL [None]
  - INJECTION SITE WARMTH [None]
  - LACRIMATION INCREASED [None]
  - MALAISE [None]
  - RED BLOOD CELL SEDIMENTATION RATE INCREASED [None]
  - INJECTION SITE RASH [None]
  - INJECTION SITE PRURITUS [None]
